FAERS Safety Report 25403587 (Version 1)
Quarter: 2025Q2

REPORT INFORMATION
  Report Type: Spontaneous
  Country: FR (occurrence: FR)
  Receive Date: 20250605
  Receipt Date: 20250605
  Transmission Date: 20250716
  Serious: Yes (Life-Threatening, Disabling)
  Sender: JOHNSON AND JOHNSON
  Company Number: None

PATIENT
  Age: 46 Year
  Sex: Female
  Weight: 84 kg

DRUGS (1)
  1. SPRAVATO [Suspect]
     Active Substance: ESKETAMINE
     Indication: Depression
     Route: 045
     Dates: start: 20250425, end: 20250425

REACTIONS (3)
  - Dissociation [Unknown]
  - Suicide attempt [Recovered/Resolved]
  - Finger amputation [Recovered/Resolved with Sequelae]

NARRATIVE: CASE EVENT DATE: 20250425
